FAERS Safety Report 5894816-2 (Version None)
Quarter: 2008Q3

REPORT INFORMATION
  Report Type: 
  Country: None (occurrence: None)
  Receive Date: 20080828
  Receipt Date: 20080519
  Transmission Date: 20090109
  Serious: Yes (Other)
  Sender: FDA-Public Use
  Company Number: 171750USA

PATIENT

DRUGS (1)
  1. PANCURONIUM BROMIDE [Suspect]
     Dosage: INTRAVENOUS (NOT OTHERWISE SPECIFIED)
     Route: 042

REACTIONS (2)
  - MEDICATION ERROR [None]
  - RESPIRATORY FAILURE [None]
